FAERS Safety Report 5533499-8 (Version None)
Quarter: 2007Q4

REPORT INFORMATION
  Report Type: 
  Country: None (occurrence: None)
  Receive Date: 20071204
  Receipt Date: 20071127
  Transmission Date: 20080405
  Serious: Yes (Death)
  Sender: FDA-Public Use
  Company Number: PFIZER INC-2007099943

PATIENT
  Sex: Female
  Weight: 69.9 kg

DRUGS (2)
  1. CAMPTOSAR [Suspect]
     Indication: COLON CANCER
     Dates: start: 20071112, end: 20071121
  2. ALL OTHER THERAPEUTIC PRODUCTS [Concomitant]

REACTIONS (1)
  - DEATH [None]
